FAERS Safety Report 5766018-1 (Version None)
Quarter: 2008Q2

REPORT INFORMATION
  Report Type: 
  Country: None (occurrence: None)
  Receive Date: 20080606
  Receipt Date: 20080523
  Transmission Date: 20081010
  Serious: Yes (Other)
  Sender: FDA-Public Use
  Company Number: AZAUS200800082

PATIENT
  Age: 66 Year
  Sex: Female
  Weight: 85 kg

DRUGS (4)
  1. VIDAZA [Suspect]
     Indication: MYELODYSPLASTIC SYNDROME
     Dosage: (50 MG/M2, DAILY X 10 DAYS), SUBCUTANEOUS
     Route: 058
     Dates: start: 20080213, end: 20080222
  2. MS-275 [Suspect]
     Indication: MYELODYSPLASTIC SYNDROME
     Dosage: (4 MG/M2, DAILY ON DAYS 3 AND 10 OF EACH CYCLE), ORAL
     Route: 048
     Dates: start: 20080215, end: 20080222
  3. COMPAZINE [Concomitant]
  4. VITAMINS (VITAMINS NOS) [Concomitant]

REACTIONS (10)
  - BREAST HAEMATOMA [None]
  - ECCHYMOSIS [None]
  - EPISTAXIS [None]
  - IDIOPATHIC THROMBOCYTOPENIC PURPURA [None]
  - INJECTION SITE INDURATION [None]
  - INJURY [None]
  - KARYOTYPE ANALYSIS ABNORMAL [None]
  - NEUTROPENIA [None]
  - PANCYTOPENIA [None]
  - SKIN MASS [None]
